FAERS Safety Report 15507848 (Version 1)
Quarter: 2018Q4

REPORT INFORMATION
  Report Type: Spontaneous
  Country: MX (occurrence: MX)
  Receive Date: 20181016
  Receipt Date: 20181016
  Transmission Date: 20190205
  Serious: Yes (Life-Threatening, Other)
  Sender: FDA-Public Use
  Company Number: MX-ALLERGAN-1849168US

PATIENT
  Age: 19 Year
  Sex: Male

DRUGS (7)
  1. GATIFLOXACIN. [Concomitant]
     Active Substance: GATIFLOXACIN
     Dosage: EYE DROPS, Q8HR
  2. PREDNISOLONE UNK [Suspect]
     Active Substance: PREDNISOLONE
     Indication: CORNEAL FLAP COMPLICATION
     Dosage: UNK UNK, Q2HR
     Route: 061
  3. PREDNISOLONE UNK [Suspect]
     Active Substance: PREDNISOLONE
     Indication: VISION BLURRED
  4. TRETINOIN. [Suspect]
     Active Substance: TRETINOIN
     Indication: ACNE
     Dosage: UNKNOWN
  5. CARMELLOSE SODIUM [Concomitant]
     Active Substance: CARBOXYMETHYLCELLULOSE SODIUM
     Indication: KERATOPATHY
     Dosage: UNK UNK, Q6HR
     Route: 061
  6. TOPICAL ANTIBIOTICS [Concomitant]
  7. FLUOROMETHOLONE ACETATE [Concomitant]
     Active Substance: FLUOROMETHOLONE ACETATE
     Dosage: UNK UNK, Q6HR

REACTIONS (10)
  - Optic neuropathy [Recovering/Resolving]
  - Incorrect product administration duration [Unknown]
  - Depression [Unknown]
  - Ocular hypertension [Recovering/Resolving]
  - Intraocular pressure increased [Recovering/Resolving]
  - Off label use [Unknown]
  - Corneal disorder [Unknown]
  - Cataract subcapsular [Not Recovered/Not Resolved]
  - Keratopathy [Recovering/Resolving]
  - Suicide attempt [Unknown]
